FAERS Safety Report 23048531 (Version 1)
Quarter: 2023Q4

REPORT INFORMATION
  Report Type: Spontaneous
  Country: CN (occurrence: CN)
  Receive Date: 20231010
  Receipt Date: 20231010
  Transmission Date: 20240110
  Serious: Yes (Hospitalization, Other)
  Sender: FDA-Public Use
  Company Number: None

PATIENT
  Age: 55 Year
  Sex: Female

DRUGS (5)
  1. METHOTREXATE [Suspect]
     Active Substance: METHOTREXATE
     Indication: Systemic scleroderma
     Dosage: 15 MILLIGRAM, ONCE A WEEK
     Route: 065
     Dates: start: 2012, end: 2020
  2. PREDNISOLONE [Suspect]
     Active Substance: PREDNISOLONE
     Indication: Systemic scleroderma
     Dosage: 5 MILLIGRAM, BID
     Route: 065
     Dates: start: 2012
  3. HERBALS [Suspect]
     Active Substance: HERBALS
     Indication: Systemic scleroderma
     Dosage: UNK
     Route: 065
     Dates: start: 201911
  4. CYCLOPHOSPHAMIDE [Suspect]
     Active Substance: CYCLOPHOSPHAMIDE
     Indication: Systemic scleroderma
     Dosage: 50 MILLIGRAM, BID
     Route: 065
     Dates: start: 201501, end: 201607
  5. CYCLOPHOSPHAMIDE [Suspect]
     Active Substance: CYCLOPHOSPHAMIDE
     Dosage: 50 MILLIGRAM, QD, DOSE REDUCED
     Route: 065
     Dates: start: 201607, end: 201911

REACTIONS (2)
  - Malacoplakia [Recovered/Resolved]
  - Off label use [Unknown]

NARRATIVE: CASE EVENT DATE: 20200101
